FAERS Safety Report 6242382-4 (Version None)
Quarter: 2009Q2

REPORT INFORMATION
  Report Type: 
  Country: None (occurrence: None)
  Receive Date: 20090624
  Receipt Date: 20090610
  Transmission Date: 20091009
  Serious: Yes (Hospitalization, Other)
  Sender: FDA-Public Use
  Company Number: US-TEVA-FEI2009-1256

PATIENT
  Sex: Female
  Weight: 89.892 kg

DRUGS (9)
  1. PARAGARD COPPER TCU 380A [Suspect]
     Indication: CONTRACEPTION
     Dates: start: 20060101
  2. TYLOX                              /00446701/ [Concomitant]
     Indication: NECK PAIN
     Route: 048
  3. GABAPENTIN [Concomitant]
     Indication: TENDONITIS
     Route: 048
  4. GABAPENTIN [Concomitant]
     Indication: ARTHRALGIA
  5. CLONAZEPAM [Concomitant]
     Indication: SLEEP DISORDER
     Route: 048
  6. TRAMADOL HYDROCHLORIDE [Concomitant]
     Dosage: 1-2 MG DAILY
     Route: 048
  7. ALPRAZOLAM [Concomitant]
     Dosage: PRN
     Route: 048
  8. ORPHENADRINE CITRATE [Concomitant]
     Dosage: PRN
     Route: 048
  9. OXYCODONE HYDROCHLORIDE [Concomitant]
     Route: 048
     Dates: start: 20060101, end: 20070101

REACTIONS (6)
  - ANOREXIA [None]
  - CHILLS [None]
  - PYREXIA [None]
  - SKIN LESION [None]
  - SPINAL COMPRESSION FRACTURE [None]
  - TRICHOMONIASIS [None]
